FAERS Safety Report 5702749-7 (Version None)
Quarter: 2008Q2

REPORT INFORMATION
  Report Type: 
  Country: None (occurrence: None)
  Receive Date: 20080411
  Receipt Date: 20080331
  Transmission Date: 20081010
  Serious: Yes (Hospitalization)
  Sender: FDA-Public Use
  Company Number: B0514962A

PATIENT
  Age: 89 Year
  Sex: Female

DRUGS (7)
  1. DEROXAT [Suspect]
     Dosage: 20MG PER DAY
     Route: 048
     Dates: start: 20080211, end: 20080225
  2. ARICEPT [Concomitant]
     Dosage: 10MG PER DAY
     Route: 048
  3. POTASSIUM CHLORIDE [Concomitant]
     Dosage: 1000MG TWICE PER DAY
     Route: 048
  4. IMOVANE [Concomitant]
     Route: 048
  5. CETORNAN [Concomitant]
     Dosage: 5G TWICE PER DAY
     Route: 048
  6. COLECALCIFEROL [Concomitant]
     Route: 048
  7. ALENDRONATE SODIUM [Concomitant]
     Route: 048

REACTIONS (6)
  - DEHYDRATION [None]
  - DIARRHOEA [None]
  - GASTROENTERITIS [None]
  - GENERAL PHYSICAL HEALTH DETERIORATION [None]
  - HYPONATRAEMIA [None]
  - VOMITING [None]
